FAERS Safety Report 13086206 (Version 1)
Quarter: 2017Q1

REPORT INFORMATION
  Report Type: Spontaneous
  Country: US (occurrence: US)
  Receive Date: 20170104
  Receipt Date: 20170104
  Transmission Date: 20170428
  Serious: No
  Sender: FDA-Public Use
  Company Number: US-TEVA-726539USA

PATIENT
  Sex: Female

DRUGS (1)
  1. QVAR [Suspect]
     Active Substance: BECLOMETHASONE DIPROPIONATE
     Route: 065

REACTIONS (4)
  - Product quality issue [Unknown]
  - Product physical issue [Unknown]
  - Product cleaning inadequate [Unknown]
  - Dyspnoea [Recovered/Resolved]
